FAERS Safety Report 5469916-1 (Version None)
Quarter: 2007Q3

REPORT INFORMATION
  Report Type: 
  Country: None (occurrence: None)
  Receive Date: 20070927
  Receipt Date: 20070919
  Transmission Date: 20080115
  Serious: Yes (Other)
  Sender: FDA-Public Use
  Company Number: US-ELI_LILLY_AND_COMPANY-US200709003946

PATIENT
  Age: 55 Year
  Sex: Male

DRUGS (12)
  1. HUMALOG MIX 75/25 [Suspect]
     Dates: start: 20040101
  2. HUMULIN R [Suspect]
     Dosage: UNK, OTHER
     Dates: start: 19990101
  3. LANTUS [Concomitant]
     Dosage: UNK, EACH MORNING
  4. LANTUS [Concomitant]
     Dosage: UNK, EACH EVENING
  5. LIPITOR [Concomitant]
  6. TRICOR [Concomitant]
  7. GLUCOTROL [Concomitant]
  8. COUMADIN [Concomitant]
  9. COREG [Concomitant]
  10. DILTIAZEM [Concomitant]
  11. GLUCOPHAGE [Concomitant]
  12. TRIGLYCERIDES [Concomitant]

REACTIONS (7)
  - BLOOD GLUCOSE INCREASED [None]
  - CARDIOMYOPATHY [None]
  - CEREBROVASCULAR ACCIDENT [None]
  - CONVULSION [None]
  - CORONARY ARTERY OCCLUSION [None]
  - DRUG INEFFECTIVE [None]
  - RENAL FAILURE [None]
